FAERS Safety Report 23406788 (Version 3)
Quarter: 2024Q1

REPORT INFORMATION
  Report Type: Spontaneous
  Country: US (occurrence: US)
  Receive Date: 20240116
  Receipt Date: 20240206
  Transmission Date: 20240409
  Serious: No
  Sender: FDA-Public Use
  Company Number: US-VERTEX PHARMACEUTICALS-2024-000406

PATIENT
  Age: 26 Year
  Sex: Female

DRUGS (2)
  1. TRIKAFTA [Suspect]
     Active Substance: ELEXACAFTOR\IVACAFTOR\TEZACAFTOR
     Indication: Cystic fibrosis
     Dosage: UNKNOWN DOSAGE REGIMEN
     Route: 048
     Dates: start: 2019
  2. INSULIN NOS [Concomitant]
     Active Substance: INSULIN NOS
     Indication: Cystic fibrosis related diabetes
     Dosage: UNK

REACTIONS (15)
  - Nervousness [Unknown]
  - Illness [Unknown]
  - Cystic fibrosis related diabetes [Unknown]
  - Infective pulmonary exacerbation of cystic fibrosis [Unknown]
  - Blood glucose decreased [Recovered/Resolved]
  - Panic attack [Unknown]
  - Thinking abnormal [Unknown]
  - Back pain [Unknown]
  - Muscle spasms [Unknown]
  - Morbid thoughts [Unknown]
  - Feeling abnormal [Unknown]
  - Nephrolithiasis [Unknown]
  - Anxiety [Recovering/Resolving]
  - Mental disorder [Recovering/Resolving]
  - Daydreaming [Not Recovered/Not Resolved]
